FAERS Safety Report 9224890 (Version 3)
Quarter: 2013Q4

REPORT INFORMATION
  Report Type: Spontaneous
  Country: US (occurrence: US)
  Receive Date: 20130411
  Receipt Date: 20131231
  Transmission Date: 20140711
  Serious: Yes (Hospitalization, Other)
  Sender: FDA-Public Use
  Company Number: US-PFIZER INC-2013110239

PATIENT
  Age: 38 Year
  Sex: Female
  Weight: 156.64 kg

DRUGS (12)
  1. REVATIO [Suspect]
     Dosage: UNK
  2. FLOLAN [Suspect]
     Indication: PULMONARY ARTERIAL HYPERTENSION
     Dosage: 40 NG/KG/MIN CONCENTRATION 105,000NG/ML AT 88 ML/DAY PUMP RATE
     Route: 042
     Dates: start: 20050309
  3. FLOLAN [Suspect]
     Dosage: UNK
  4. FLOLAN [Suspect]
     Dosage: UNK
  5. FLOLAN [Suspect]
     Dosage: UNK
  6. FLOLAN [Suspect]
     Dosage: UNK
  7. FLOLAN [Suspect]
     Dosage: UNK
  8. FLOLAN [Suspect]
     Dosage: UNK
  9. FLOLAN [Suspect]
     Dosage: UNK
  10. LETAIRIS [Suspect]
     Dosage: UNK
  11. LASIX [Concomitant]
     Dosage: UNK
  12. IMODIUM [Concomitant]
     Dosage: UNK

REACTIONS (16)
  - Pulmonary arterial hypertension [Not Recovered/Not Resolved]
  - Ascites [Not Recovered/Not Resolved]
  - Pain in jaw [Not Recovered/Not Resolved]
  - Erythema [Not Recovered/Not Resolved]
  - Flushing [Not Recovered/Not Resolved]
  - Diarrhoea [Not Recovered/Not Resolved]
  - Abdominal distension [Not Recovered/Not Resolved]
  - Gastrointestinal disorder [Unknown]
  - Fluid retention [Unknown]
  - Rash [Not Recovered/Not Resolved]
  - Rash pruritic [Unknown]
  - Dermatitis contact [Unknown]
  - Urticaria [Unknown]
  - Infertility female [Unknown]
  - Oedema [Unknown]
  - Local swelling [Unknown]
